FAERS Safety Report 9921214 (Version 1)
Quarter: 2014Q1

REPORT INFORMATION
  Report Type: Other
  Country: DE (occurrence: DE)
  Receive Date: 20140225
  Receipt Date: 20140225
  Transmission Date: 20141002
  Serious: Yes (Congenital Anomaly, Other)
  Sender: FDA-Public Use
  Company Number: DE-SUN PHARMACEUTICAL INDUSTRIES LTD-2014SUN00371

PATIENT
  Age: 1 Day
  Sex: Female

DRUGS (4)
  1. VENLAFAXINE HYDROCHLORIDE EXTENDED- RELEASE TABS 150MG [Suspect]
     Indication: PRODUCT USED FOR UNKNOWN INDICATION
     Dosage: 150 MG, QD
     Route: 064
     Dates: start: 20120505, end: 20130124
  2. LAMOTRIGINE [Suspect]
     Indication: PRODUCT USED FOR UNKNOWN INDICATION
     Dosage: 100 MG, QD
     Route: 064
     Dates: start: 20120505, end: 20130124
  3. VOMEX A [Concomitant]
     Route: 064
  4. FOLSAURE [Concomitant]

REACTIONS (3)
  - Ventricular septal defect [Not Recovered/Not Resolved]
  - Atrial septal defect [Recovering/Resolving]
  - Foetal exposure during pregnancy [Unknown]
